FAERS Safety Report 19436247 (Version 1)
Quarter: 2021Q2

REPORT INFORMATION
  Report Type: Spontaneous
  Country: DE (occurrence: DE)
  Receive Date: 20210618
  Receipt Date: 20210618
  Transmission Date: 20210717
  Serious: Yes (Other)
  Sender: FDA-Public Use
  Company Number: NVSC2021DE107725

PATIENT
  Age: 85 Year
  Sex: Female

DRUGS (3)
  1. ESTRAMON CONTI 40/130 MIKROGRAMM/24H TRANSDERMALES PFLASTER [Suspect]
     Active Substance: ESTRADIOL\NORETHINDRONE ACETATE
     Indication: PRODUCT USED FOR UNKNOWN INDICATION
     Dosage: UNK
     Route: 065
  2. ESTRAMON CONTI 40/130 MIKROGRAMM/24H TRANSDERMALES PFLASTER [Suspect]
     Active Substance: ESTRADIOL\NORETHINDRONE ACETATE
     Dosage: ? DOSAGE FORM
     Route: 065
  3. LIXIANA [Concomitant]
     Active Substance: EDOXABAN TOSYLATE
     Indication: PRODUCT USED FOR UNKNOWN INDICATION
     Dosage: UNK
     Route: 065

REACTIONS (3)
  - Arrhythmia [Unknown]
  - Breast mass [Unknown]
  - Breast cancer [Unknown]

NARRATIVE: CASE EVENT DATE: 202105
